FAERS Safety Report 7788135-7 (Version None)
Quarter: 2011Q3

REPORT INFORMATION
  Report Type: 
  Country: None (occurrence: None)
  Receive Date: 20110929
  Receipt Date: 20110929
  Transmission Date: 20111222
  Serious: Yes (Life-Threatening, Hospitalization)
  Sender: FDA-Public Use
  Company Number: None

PATIENT
  Age: 81 Year
  Sex: Male
  Weight: 78.2 kg

DRUGS (2)
  1. LISINOPRIL [Suspect]
     Dosage: 10 MG EVERY DAY PO
     Route: 048
     Dates: start: 20110526, end: 20110802
  2. OXYCODONE HCL [Suspect]
     Dosage: 5 MG UD PO
     Route: 048
     Dates: start: 20110726, end: 20110727

REACTIONS (1)
  - ANGIOEDEMA [None]
